FAERS Safety Report 16337255 (Version 1)
Quarter: 2019Q2

REPORT INFORMATION
  Report Type: Other
  Country: CA (occurrence: CA)
  Receive Date: 20190521
  Receipt Date: 20190521
  Transmission Date: 20190711
  Serious: Yes (Other)
  Sender: FDA-Public Use
  Company Number: CA-APOTEX-2019AP014101

PATIENT
  Age: 30 Year
  Sex: Female

DRUGS (1)
  1. APO-TRAMADOL/ACET [Suspect]
     Active Substance: ACETAMINOPHEN\TRAMADOL HYDROCHLORIDE
     Indication: ANALGESIC THERAPY
     Dosage: 2 DF, Q.6H
     Route: 048

REACTIONS (2)
  - Therapeutic product cross-reactivity [Recovered/Resolved]
  - Rash generalised [Recovered/Resolved]
